FAERS Safety Report 25044977 (Version 4)
Quarter: 2025Q3

REPORT INFORMATION
  Report Type: Report from Study
  Country: US (occurrence: US)
  Receive Date: 20250306
  Receipt Date: 20250923
  Transmission Date: 20251021
  Serious: Yes (Hospitalization)
  Sender: SUNOVION
  Company Number: US-SUMITOMO PHARMA SWITZERLAND GMBH-2025SPA001449

PATIENT
  Age: 74 Year
  Sex: Male

DRUGS (4)
  1. ORGOVYX [Suspect]
     Active Substance: RELUGOLIX
     Indication: Prostate cancer
     Route: 048
  2. ORGOVYX [Suspect]
     Active Substance: RELUGOLIX
     Dosage: 120 MG, QD
     Route: 048
     Dates: start: 20241205
  3. ASPIRIN [Suspect]
     Active Substance: ASPIRIN
  4. NUBEQA [Concomitant]
     Active Substance: DAROLUTAMIDE
     Indication: Prostate cancer

REACTIONS (6)
  - Stent placement [Unknown]
  - Cardiac disorder [Unknown]
  - Dyspnoea [Unknown]
  - Weight increased [Unknown]
  - Fatigue [Unknown]
  - Hot flush [Unknown]
